FAERS Safety Report 5972908-7 (Version None)
Quarter: 2008Q4

REPORT INFORMATION
  Report Type: 
  Country: None (occurrence: None)
  Receive Date: 20081126
  Receipt Date: 20081126
  Transmission Date: 20090506
  Serious: Yes (Hospitalization)
  Sender: FDA-Public Use
  Company Number: None

PATIENT
  Sex: Female
  Weight: 45.3597 kg

DRUGS (2)
  1. ALIMTA [Suspect]
     Indication: HEAD AND NECK CANCER
     Dosage: 500MG/M2 EVERY 3 WEEKS IV DRIP
     Dates: start: 20080611, end: 20081105
  2. AVASTIN [Suspect]
     Dosage: 15MG/KG EVERY 3 WEEKS IV DRIP
     Route: 041
     Dates: start: 20080611, end: 20081105

REACTIONS (1)
  - ORAL INFECTION [None]
